FAERS Safety Report 23054031 (Version 1)
Quarter: 2023Q4

REPORT INFORMATION
  Report Type: Spontaneous
  Country: JP (occurrence: JP)
  Receive Date: 20231011
  Receipt Date: 20231011
  Transmission Date: 20240110
  Serious: Yes (Hospitalization, Other)
  Sender: FDA-Public Use
  Company Number: JP-ELI_LILLY_AND_COMPANY-JP202309013211

PATIENT
  Age: 35 Year
  Sex: Female

DRUGS (1)
  1. OLANZAPINE [Suspect]
     Active Substance: OLANZAPINE
     Indication: Product used for unknown indication
     Route: 048

REACTIONS (3)
  - Psychiatric symptom [Unknown]
  - Gestational diabetes [Unknown]
  - Maternal exposure during pregnancy [Unknown]
